FAERS Safety Report 6232905-3 (Version None)
Quarter: 2009Q2

REPORT INFORMATION
  Report Type: 
  Country: None (occurrence: None)
  Receive Date: 20090612
  Receipt Date: 20090612
  Transmission Date: 20091009
  Serious: Yes (Other)
  Sender: FDA-Public Use
  Company Number: None

PATIENT
  Sex: Female
  Weight: 50.8029 kg

DRUGS (2)
  1. EFFEXOR XR [Suspect]
     Indication: ANXIETY DISORDER
     Dates: start: 20081210, end: 20090606
  2. EFFEXOR XR [Suspect]
     Indication: DEPRESSION
     Dates: start: 20081210, end: 20090606

REACTIONS (2)
  - CONVULSION [None]
  - SEROTONIN SYNDROME [None]
